FAERS Safety Report 10237103 (Version 1)
Quarter: 2014Q2

REPORT INFORMATION
  Report Type: Spontaneous
  Country: BE (occurrence: BE)
  Receive Date: 20140613
  Receipt Date: 20140613
  Transmission Date: 20141212
  Serious: Yes (Hospitalization, Other)
  Sender: FDA-Public Use
  Company Number: BE-ASTRAZENECA-2014SE39825

PATIENT
  Age: 70 Year
  Sex: Male

DRUGS (4)
  1. QUETIAPINE [Suspect]
     Indication: MENTAL DISORDER
     Route: 048
  2. QUETIAPINE [Suspect]
     Indication: MENTAL DISORDER
     Route: 048
  3. ZOLPIDEM [Concomitant]
     Indication: MENTAL DISORDER
     Dosage: ONCE DAILY
  4. CHLORAZEPINE [Concomitant]
     Indication: MENTAL DISORDER
     Dosage: AS REQUIRED

REACTIONS (8)
  - Ureteric dilatation [Recovered/Resolved]
  - Hydronephrosis [Recovered/Resolved]
  - Postrenal failure [Recovered/Resolved]
  - Hyponatraemia [Recovered/Resolved]
  - Hyperkalaemia [Recovered/Resolved]
  - Metabolic acidosis [Recovered/Resolved]
  - Urinary retention [Recovered/Resolved]
  - Oedema peripheral [Recovered/Resolved]
